FAERS Safety Report 24141861 (Version 2)
Quarter: 2024Q3

REPORT INFORMATION
  Report Type: Spontaneous
  Country: US (occurrence: US)
  Receive Date: 20240726
  Receipt Date: 20240726
  Transmission Date: 20241017
  Serious: Yes (Other)
  Sender: ROCHE
  Company Number: US-ROCHE-10000029980

PATIENT
  Age: 64 Year
  Sex: Female
  Weight: 94.8 kg

DRUGS (2)
  1. ACTEMRA [Suspect]
     Active Substance: TOCILIZUMAB
     Indication: Rheumatoid arthritis
     Route: 065
  2. RITUXAN [Suspect]
     Active Substance: RITUXIMAB
     Indication: Rheumatoid arthritis
     Route: 042
     Dates: start: 201901

REACTIONS (11)
  - COVID-19 [Unknown]
  - Cough [Unknown]
  - Respiratory tract infection [Unknown]
  - Pneumonia [Unknown]
  - Feeding disorder [Unknown]
  - Eating disorder [Unknown]
  - Body temperature increased [Unknown]
  - Sinusitis [Unknown]
  - Pulmonary thrombosis [Unknown]
  - Weight decreased [Not Recovered/Not Resolved]
  - Illness [Unknown]

NARRATIVE: CASE EVENT DATE: 20231201
